FAERS Safety Report 16675846 (Version 3)
Quarter: 2019Q3

REPORT INFORMATION
  Report Type: Report from Study
  Country: None (occurrence: CH)
  Receive Date: 20190807
  Receipt Date: 20190911
  Transmission Date: 20191004
  Serious: Yes (Life-Threatening, Hospitalization)
  Sender: FDA-Public Use
  Company Number: CH-ABBVIE-19K-151-2878400-00

PATIENT
  Age: 77 Year
  Sex: Male

DRUGS (5)
  1. LYRICA [Suspect]
     Active Substance: PREGABALIN
     Indication: PRODUCT USED FOR UNKNOWN INDICATION
     Dosage: 1 IN MR, 1 IN EVE
     Route: 065
     Dates: start: 20190724, end: 20190729
  2. DUODOPA [Suspect]
     Active Substance: CARBIDOPA\LEVODOPA
     Dosage: MD: 6ML; CONT RATE DAY:2.6 ML/H; CONT RATE NIGHT:0.6 ML/H; ED:1.5 ML; FREQ:24 HR
     Route: 050
     Dates: start: 20190801
  3. DUODOPA [Suspect]
     Active Substance: CARBIDOPA\LEVODOPA
     Indication: PARKINSON^S DISEASE
     Dosage: 1 CASSETTE / DAY
     Route: 050
     Dates: start: 201410, end: 20181207
  4. DUODOPA [Suspect]
     Active Substance: CARBIDOPA\LEVODOPA
     Dosage: MD:6 ML; CONT RATE DAY:2.6 ML/H; CONT RATE NIGHT:0.6 ML/H; ED:1.5 ML; FREQ:24HR
     Route: 050
     Dates: start: 20190428, end: 20190801
  5. DUODOPA [Suspect]
     Active Substance: CARBIDOPA\LEVODOPA
     Dosage: MD:7 ML;CONT RATE DAY:2.9 ML/H; CONT RATE NIGHT: 2.5 ML/H;ED:1.5 ML, FREQ: 24 H THERAPY
     Route: 050
     Dates: start: 20181207, end: 20190428

REACTIONS (7)
  - Lip erythema [Unknown]
  - Pharyngeal erythema [Unknown]
  - Device issue [Unknown]
  - Dermatitis allergic [Unknown]
  - Drug hypersensitivity [Recovered/Resolved]
  - Allergic oedema [Unknown]
  - Somnolence [Unknown]

NARRATIVE: CASE EVENT DATE: 20190731
